FAERS Safety Report 5876454-0 (Version None)
Quarter: 2008Q3

REPORT INFORMATION
  Report Type: 
  Country: None (occurrence: None)
  Receive Date: 20080908
  Receipt Date: 20080908
  Transmission Date: 20090109
  Serious: No
  Sender: FDA-Public Use
  Company Number: None

PATIENT
  Sex: Female
  Weight: 54.4316 kg

DRUGS (2)
  1. LEVAQUIN [Suspect]
     Indication: BACTERIAL INFECTION
     Dosage: DOUBLE DOSE 1ST DAY SINGLE DOSE 4-WEEK
     Dates: start: 20080804, end: 20080816
  2. LEVAQUIN [Suspect]
     Indication: BREAST INFECTION
     Dosage: DOUBLE DOSE 1ST DAY SINGLE DOSE 4-WEEK
     Dates: start: 20080804, end: 20080816

REACTIONS (3)
  - ACTIVITIES OF DAILY LIVING IMPAIRED [None]
  - BONE PAIN [None]
  - MYALGIA [None]
